FAERS Safety Report 9095545 (Version 2)
Quarter: 2013Q1

REPORT INFORMATION
  Report Type: Spontaneous
  Country: JP (occurrence: None)
  Receive Date: 20130124
  Receipt Date: 20130225
  Transmission Date: 20140127
  Serious: Yes (Life-Threatening, Hospitalization)
  Sender: FDA-Public Use
  Company Number: 2013-005190

PATIENT
  Age: 72 Year
  Sex: Male

DRUGS (1)
  1. EYLEA (AFLIBERCEPT) SOLUTION FOR INJECTION [Suspect]
     Indication: AGE-RELATED MACULAR DEGENERATION
     Route: 031
     Dates: start: 20121128, end: 20121128

REACTIONS (1)
  - Angina unstable [None]
